FAERS Safety Report 13290492 (Version 3)
Quarter: 2017Q2

REPORT INFORMATION
  Report Type: Spontaneous
  Country: FR (occurrence: FR)
  Receive Date: 20170303
  Receipt Date: 20170510
  Transmission Date: 20170830
  Serious: Yes (Death, Life-Threatening, Hospitalization, Other)
  Sender: FDA-Public Use
  Company Number: FR-BAXTER-2017BAX008373

PATIENT
  Age: 74 Year
  Sex: Female
  Weight: 63 kg

DRUGS (13)
  1. DOCETAXEL HOSPIRA [Suspect]
     Active Substance: DOCETAXEL
     Dosage: SECOND COURSE, CONCENTRATE FOR INFUSION
     Route: 042
     Dates: start: 20170208, end: 20170208
  2. DOCETAXEL HOSPIRA [Suspect]
     Active Substance: DOCETAXEL
     Dosage: DRUG DISCONTINUED
     Route: 042
     Dates: end: 20170215
  3. HERCEPTIN [Suspect]
     Active Substance: TRASTUZUMAB
     Indication: BREAST CANCER
     Dosage: FIRST COURSE
     Route: 042
     Dates: start: 20170118, end: 20170118
  4. ENDOXAN 1000 MG, POUDRE POUR SOLUTION INJECTABLE [Suspect]
     Active Substance: CYCLOPHOSPHAMIDE
     Dosage: SECOND COURSE
     Route: 042
     Dates: start: 20170208, end: 20170208
  5. ENDOXAN 1000 MG, POUDRE POUR SOLUTION INJECTABLE [Suspect]
     Active Substance: CYCLOPHOSPHAMIDE
     Indication: BREAST CANCER
     Dosage: FIRST COURSE
     Route: 042
     Dates: start: 20170118, end: 20170118
  6. HERCEPTIN [Suspect]
     Active Substance: TRASTUZUMAB
     Dosage: SECOND COURSE
     Route: 042
     Dates: start: 20170208, end: 20170208
  7. LOW MOLECULAR WEIGHT HEPARIN [Suspect]
     Active Substance: UNSPECIFIED INGREDIENT
     Indication: PRODUCT USED FOR UNKNOWN INDICATION
     Route: 065
     Dates: start: 20170208
  8. DUROGESIC [Suspect]
     Active Substance: FENTANYL
     Indication: ARTHRALGIA
     Dosage: PATCH
     Route: 065
     Dates: start: 20170122
  9. LOW MOLECULAR WEIGHT HEPARIN [Concomitant]
     Active Substance: UNSPECIFIED INGREDIENT
     Indication: CARDIAC VALVE DISEASE
     Route: 065
  10. DOCETAXEL HOSPIRA [Suspect]
     Active Substance: DOCETAXEL
     Indication: BREAST CANCER
     Dosage: FIRST COURSE, CONCENTRATE FOR INFUSION
     Route: 042
     Dates: start: 20170118, end: 20170118
  11. DUROGESIC [Suspect]
     Active Substance: FENTANYL
     Indication: PAIN
  12. COUMADINE [Suspect]
     Active Substance: WARFARIN SODIUM
     Indication: PRODUCT USED FOR UNKNOWN INDICATION
     Dosage: STOPPED
     Route: 065
     Dates: end: 20170208
  13. CALCIPARINE [Suspect]
     Active Substance: HEPARIN CALCIUM
     Indication: PRODUCT USED FOR UNKNOWN INDICATION
     Route: 058
     Dates: start: 20170208

REACTIONS (18)
  - Thrombocytopenia [Unknown]
  - Arthralgia [Unknown]
  - Pancreatic atrophy [Unknown]
  - Brain oedema [Unknown]
  - Flatulence [Unknown]
  - Alopecia [Unknown]
  - Intraventricular haemorrhage [Unknown]
  - Haemoglobin decreased [Unknown]
  - Blood alkaline phosphatase increased [Unknown]
  - Leukopenia [Unknown]
  - Gamma-glutamyltransferase increased [Unknown]
  - Pancytopenia [Fatal]
  - Systemic lupus erythematosus rash [Unknown]
  - Renal artery arteriosclerosis [Unknown]
  - Loss of consciousness [Unknown]
  - Pain [Unknown]
  - Cerebral haematoma [Fatal]
  - Abdominal pain [Unknown]

NARRATIVE: CASE EVENT DATE: 20170122
